FAERS Safety Report 4552058-7 (Version None)
Quarter: 2005Q1

REPORT INFORMATION
  Report Type: 
  Country: None (occurrence: None)
  Receive Date: 20050113
  Receipt Date: 20040720
  Transmission Date: 20050727
  Serious: Yes (Hospitalization, Other)
  Sender: FDA-Public Use
  Company Number: US-MERCK-0407USA01742

PATIENT
  Age: 62 Year
  Sex: Male
  Weight: 100 kg

DRUGS (9)
  1. VIOXX [Suspect]
     Indication: ARTHRITIS
     Route: 048
     Dates: start: 19991106, end: 20000202
  2. VIOXX [Suspect]
     Route: 048
     Dates: start: 20000220
  3. HUMULIN N [Concomitant]
     Indication: DIABETES MELLITUS
     Route: 065
  4. HUMULIN R [Concomitant]
     Indication: DIABETES MELLITUS
     Route: 065
  5. NAPROXEN [Concomitant]
     Route: 048
     Dates: start: 19991106
  6. NAPROXEN [Concomitant]
     Route: 048
     Dates: start: 19991106
  7. LIVOSTIN [Concomitant]
     Route: 047
     Dates: start: 19991230
  8. PREVACID [Concomitant]
     Route: 048
     Dates: start: 19990901
  9. VASOTEC [Concomitant]
     Route: 065

REACTIONS (13)
  - AORTIC DILATATION [None]
  - DYSPNOEA EXERTIONAL [None]
  - GASTROOESOPHAGEAL REFLUX DISEASE [None]
  - INSOMNIA [None]
  - ISCHAEMIC STROKE [None]
  - NERVOUSNESS [None]
  - NEUROPATHY PERIPHERAL [None]
  - OEDEMA PERIPHERAL [None]
  - PAIN IN EXTREMITY [None]
  - POLLAKIURIA [None]
  - SINUS CONGESTION [None]
  - SLEEP APNOEA SYNDROME [None]
  - VENTRICULAR HYPERTROPHY [None]
